FAERS Safety Report 6268214-6 (Version None)
Quarter: 2009Q3

REPORT INFORMATION
  Report Type: 
  Country: None (occurrence: None)
  Receive Date: 20090714
  Receipt Date: 20090714
  Transmission Date: 20100115
  Serious: No
  Sender: FDA-Public Use
  Company Number: None

PATIENT
  Age: 66 Year
  Sex: Female
  Weight: 47.1741 kg

DRUGS (1)
  1. LEVAQUIN [Suspect]
     Indication: URINARY TRACT INFECTION
     Dosage: ONE ONCE DAILY PO
     Route: 048
     Dates: start: 20090706, end: 20090708

REACTIONS (6)
  - ANXIETY [None]
  - COORDINATION ABNORMAL [None]
  - DIZZINESS [None]
  - HYPOTENSION [None]
  - MALAISE [None]
  - TREMOR [None]
